FAERS Safety Report 19320315 (Version 1)
Quarter: 2021Q2

REPORT INFORMATION
  Report Type: Other
  Country: CN (occurrence: CN)
  Receive Date: 20210527
  Receipt Date: 20210527
  Transmission Date: 20210717
  Serious: Yes (Other)
  Sender: FDA-Public Use
  Company Number: CN-ROCHE-2232664

PATIENT
  Age: 54 Year
  Sex: Male
  Weight: 80 kg

DRUGS (1)
  1. AVASTIN [Suspect]
     Active Substance: BEVACIZUMAB
     Indication: COLON CANCER
     Route: 041
     Dates: start: 20170930

REACTIONS (5)
  - Inflammation [Unknown]
  - Otitis media [Unknown]
  - Pulmonary mass [Unknown]
  - Abdominal pain upper [Unknown]
  - Pneumonitis [Unknown]

NARRATIVE: CASE EVENT DATE: 202105
